FAERS Safety Report 20237373 (Version 1)
Quarter: 2021Q4

REPORT INFORMATION
  Report Type: Spontaneous
  Country: US (occurrence: None)
  Receive Date: 20211227
  Receipt Date: 20211227
  Transmission Date: 20220303
  Serious: No
  Sender: FDA-Public Use
  Company Number: None

PATIENT
  Age: 74 Year
  Sex: Male
  Weight: 114.75 kg

DRUGS (12)
  1. CLINDAMYCIN PHOSPHATE [Suspect]
     Active Substance: CLINDAMYCIN PHOSPHATE
     Indication: Tooth infection
     Dosage: FREQUENCY : EVERY 6 HOURS;?
     Route: 048
     Dates: start: 20211221, end: 20211227
  2. Cardiac defibrillator [Concomitant]
  3. AMIODARONE [Concomitant]
     Active Substance: AMIODARONE
  4. WARFARIN [Concomitant]
     Active Substance: WARFARIN
  5. METOPROLOL [Concomitant]
     Active Substance: METOPROLOL
  6. ENTRESTO [Concomitant]
     Active Substance: SACUBITRIL\VALSARTAN
  7. Rosivadtatin [Concomitant]
  8. MAGNESIUM [Concomitant]
     Active Substance: MAGNESIUM
  9. MINERALS\VITAMINS [Concomitant]
     Active Substance: MINERALS\VITAMINS
  10. Super B supplement [Concomitant]
  11. VITAMIN D3 [Concomitant]
     Active Substance: CHOLECALCIFEROL
  12. MEDICAL FOOD [Concomitant]
     Active Substance: MEDICAL FOOD

REACTIONS (2)
  - Abdominal pain upper [None]
  - Chest discomfort [None]

NARRATIVE: CASE EVENT DATE: 20211226
